FAERS Safety Report 9419392 (Version 1)
Quarter: 2013Q3

REPORT INFORMATION
  Report Type: Spontaneous
  Country: AU (occurrence: AU)
  Receive Date: 20130725
  Receipt Date: 20130725
  Transmission Date: 20140515
  Serious: Yes (Hospitalization)
  Sender: FDA-Public Use
  Company Number: AU-MERCK-1307AUS007836

PATIENT
  Age: 16 Month
  Sex: Female
  Weight: 11 kg

DRUGS (1)
  1. CLARATYNE [Suspect]
     Dosage: UNK
     Route: 048
     Dates: start: 200901

REACTIONS (5)
  - Accidental exposure to product by child [Unknown]
  - Accidental overdose [Unknown]
  - Heart rate increased [Unknown]
  - Blood pressure increased [Unknown]
  - Urinary retention [Unknown]
